FAERS Safety Report 7442627-9 (Version None)
Quarter: 2011Q2

REPORT INFORMATION
  Report Type: 
  Country: None (occurrence: None)
  Receive Date: 20110425
  Receipt Date: 20110425
  Transmission Date: 20111010
  Serious: Yes (Hospitalization)
  Sender: FDA-Public Use
  Company Number: None

PATIENT
  Age: 57 Year
  Sex: Male
  Weight: 112.3 kg

DRUGS (1)
  1. LISINOPRIL AND HYDROCHLOROTHIAZIDE [Suspect]
     Indication: HYPOTENSION
     Dosage: 1 TAB EVERY DAY PO
     Route: 048
     Dates: start: 20101130, end: 20110424

REACTIONS (3)
  - INSOMNIA [None]
  - ANGIOEDEMA [None]
  - COUGH [None]
